FAERS Safety Report 6973025-X (Version None)
Quarter: 2010Q3

REPORT INFORMATION
  Report Type: 
  Country: None (occurrence: None)
  Receive Date: 20100907
  Receipt Date: 20100823
  Transmission Date: 20110219
  Serious: Yes (Other)
  Sender: FDA-Public Use
  Company Number: 1000016001

PATIENT
  Age: 24 Year
  Sex: Male
  Weight: 86 kg

DRUGS (2)
  1. CITALOPRAM (CITALOPRAM HYDROBROMIDE) [Suspect]
     Indication: DEPRESSION
     Dosage: 20 MG (20 MG, 1 IN 1 D)
     Dates: start: 20100720
  2. CITALOPRAM (CITALOPRAM HYDROBROMIDE) [Suspect]
     Dosage: 20 MG (20 MG, 1 IN 1 D)

REACTIONS (2)
  - BALANITIS [None]
  - VASCULITIS [None]
